FAERS Safety Report 9809347 (Version 1)
Quarter: 2014Q1

REPORT INFORMATION
  Report Type: Spontaneous
  Country: US (occurrence: US)
  Receive Date: 20140110
  Receipt Date: 20140110
  Transmission Date: 20141002
  Serious: Yes (Other)
  Sender: FDA-Public Use
  Company Number: US-GLAXOSMITHKLINE-A1056199A

PATIENT
  Sex: Female

DRUGS (5)
  1. LAMICTAL [Suspect]
     Indication: EPILEPSY
     Route: 065
  2. KEPPRA [Suspect]
     Indication: EPILEPSY
     Route: 065
  3. TRILEPTAL [Suspect]
     Indication: EPILEPSY
     Route: 065
  4. VIMPAT [Suspect]
     Indication: EPILEPSY
     Route: 065
  5. TOPOMAX [Suspect]
     Indication: EPILEPSY
     Route: 065

REACTIONS (4)
  - Convulsion [Recovered/Resolved]
  - Aura [Not Recovered/Not Resolved]
  - Feeling abnormal [Unknown]
  - Emotional disorder [Unknown]
